FAERS Safety Report 24632759 (Version 2)
Quarter: 2024Q4

REPORT INFORMATION
  Report Type: Spontaneous
  Country: JP (occurrence: JP)
  Receive Date: 20241118
  Receipt Date: 20241119
  Transmission Date: 20250114
  Serious: Yes (Death, Other)
  Sender: MERCK
  Company Number: JP-MSD-2411JPN001721JAA

PATIENT
  Age: 91 Year
  Sex: Female
  Weight: 54.2 kg

DRUGS (2)
  1. BRIDION [Suspect]
     Active Substance: SUGAMMADEX
     Indication: Neuromuscular blockade reversal
     Dosage: 200 MILLIGRAM
     Route: 042
     Dates: start: 202405, end: 202405
  2. ROCURONIUM BROMIDE [Suspect]
     Active Substance: ROCURONIUM BROMIDE
     Indication: Neuromuscular blocking therapy
     Dosage: 50 MILLIGRAM
     Route: 065
     Dates: start: 2024, end: 2024

REACTIONS (4)
  - Neuromuscular block prolonged [Fatal]
  - Cardiac disorder [Fatal]
  - Cardiovascular disorder [Fatal]
  - Respiratory arrest [Unknown]

NARRATIVE: CASE EVENT DATE: 20240501
